FAERS Safety Report 8759953 (Version 1)
Quarter: 2012Q4

REPORT INFORMATION
  Report Type: 
  Country: FR (occurrence: FR)
  Receive Date: 20120829
  Receipt Date: 20120829
  Transmission Date: 20130627
  Serious: Yes (Other)
  Sender: FDA-Public Use
  Company Number: FR-GLAXOSMITHKLINE-B0823897A

PATIENT
  Age: 8 Year
  Sex: Male

DRUGS (8)
  1. ZELITREX [Suspect]
     Indication: PROPHYLAXIS
     Dosage: 1G Per day
     Route: 048
     Dates: start: 2012
  2. AMOXICILLIN [Suspect]
     Indication: PROPHYLAXIS
     Dosage: 1500MG per day
     Route: 048
     Dates: start: 2012, end: 20120804
  3. KEPPRA [Suspect]
     Indication: EPILEPSY
     Dosage: 250MG Twice per day
     Route: 048
     Dates: start: 20120628
  4. CELECTOL [Suspect]
     Indication: HYPERTENSION
     Dosage: 200MG Per day
     Route: 048
     Dates: start: 20120626
  5. SPORANOX [Suspect]
     Indication: PROPHYLAXIS
     Route: 048
     Dates: start: 2012
  6. ADALATE [Suspect]
     Indication: HYPERTENSION
     Dosage: 40MG Per day
     Route: 048
     Dates: start: 201206
  7. CORTICOID [Concomitant]
     Indication: GRAFT VERSUS HOST DISEASE
     Dosage: 2MGK per day
     Dates: start: 20120416
  8. DEFIBROTIDE [Concomitant]
     Indication: VENOOCCLUSIVE DISEASE
     Dates: start: 201206

REACTIONS (3)
  - Rash maculo-papular [Unknown]
  - Pruritus [Unknown]
  - Skin exfoliation [Unknown]
